FAERS Safety Report 18786117 (Version 1)
Quarter: 2021Q1

REPORT INFORMATION
  Report Type: Spontaneous
  Country: US (occurrence: US)
  Receive Date: 20210125
  Receipt Date: 20210125
  Transmission Date: 20210419
  Serious: Yes (Death)
  Sender: FDA-Public Use
  Company Number: None

PATIENT
  Age: 50 Year
  Sex: Female
  Weight: 63.41 kg

DRUGS (13)
  1. FENOFIBRATE. [Concomitant]
     Active Substance: FENOFIBRATE
  2. OXYCODONE [Concomitant]
     Active Substance: OXYCODONE
  3. ATORVASTATIN [Concomitant]
     Active Substance: ATORVASTATIN
  4. ZOFRAN [Concomitant]
     Active Substance: ONDANSETRON HYDROCHLORIDE
  5. SUCRALFATE. [Concomitant]
     Active Substance: SUCRALFATE
  6. PROMETHAZINE [Concomitant]
     Active Substance: PROMETHAZINE HYDROCHLORIDE
  7. GABAPENTIN. [Concomitant]
     Active Substance: GABAPENTIN
  8. VALACYCLOVIR [Concomitant]
     Active Substance: VALACYCLOVIR HYDROCHLORIDE
  9. FOLIC ACID. [Concomitant]
     Active Substance: FOLIC ACID
  10. PROTEIN POWDER [Concomitant]
  11. MORPHONE SULFATE ER [Concomitant]
  12. SYNTHROID [Concomitant]
     Active Substance: LEVOTHYROXINE SODIUM
  13. TABRECTA [Suspect]
     Active Substance: CAPMATINIB
     Indication: LUNG NEOPLASM MALIGNANT
     Route: 048
     Dates: start: 20201104, end: 20201224

REACTIONS (1)
  - Death [None]

NARRATIVE: CASE EVENT DATE: 20201224
